FAERS Safety Report 7347368-4 (Version None)
Quarter: 2011Q1

REPORT INFORMATION
  Report Type: 
  Country: None (occurrence: None)
  Receive Date: 20110224
  Receipt Date: 20110215
  Transmission Date: 20110831
  Serious: Yes (Hospitalization)
  Sender: FDA-Public Use
  Company Number: AEUSA201100029

PATIENT
  Age: 62 Year
  Sex: Male
  Weight: 115.2136 kg

DRUGS (7)
  1. VITAMIN B12 /00260201/ [Concomitant]
  2. SYNTHROID [Concomitant]
  3. GAMUNEX [Suspect]
     Indication: MYASTHENIA GRAVIS
     Dosage: 225 GM; QM; IV
     Route: 042
     Dates: start: 20101101, end: 20110101
  4. ALTACE [Concomitant]
  5. MESTINON [Concomitant]
  6. AMARYL [Concomitant]
  7. CLONIDINE [Concomitant]

REACTIONS (1)
  - PANCREATITIS [None]
